FAERS Safety Report 9739412 (Version 2)
Quarter: 2013Q4

REPORT INFORMATION
  Report Type: Spontaneous
  Country: US (occurrence: US)
  Receive Date: 20131209
  Receipt Date: 20131209
  Transmission Date: 20140711
  Serious: Yes (Other)
  Sender: FDA-Public Use
  Company Number: US-BRISTOL-MYERS SQUIBB COMPANY-18786905

PATIENT
  Sex: Female

DRUGS (1)
  1. IXEMPRA [Suspect]
     Dosage: 15MG:#1L028C?45MG:#1K038C

REACTIONS (1)
  - Malignant neoplasm progression [Unknown]
